FAERS Safety Report 9257516 (Version 4)
Quarter: 2013Q4

REPORT INFORMATION
  Report Type: Spontaneous
  Country: US (occurrence: US)
  Receive Date: 20130426
  Receipt Date: 20131227
  Transmission Date: 20140711
  Serious: Yes (Hospitalization, Disabling, Other)
  Sender: FDA-Public Use
  Company Number: US-ASTRAZENECA-2013SE27577

PATIENT
  Age: 58 Year
  Sex: Female
  Weight: 68 kg

DRUGS (37)
  1. NEXIUM [Suspect]
     Indication: DYSPEPSIA
     Dosage: TWO DAILY ONE IN MORNING AND ONE IN NIGHT
     Route: 048
     Dates: start: 1997, end: 2006
  2. NEXIUM [Suspect]
     Indication: GASTROOESOPHAGEAL REFLUX DISEASE
     Dosage: TWO DAILY ONE IN MORNING AND ONE IN NIGHT
     Route: 048
     Dates: start: 1997, end: 2006
  3. NEXIUM [Suspect]
     Indication: ABDOMINAL DISCOMFORT
     Dosage: TWO DAILY ONE IN MORNING AND ONE IN NIGHT
     Route: 048
     Dates: start: 1997, end: 2006
  4. NEXIUM [Suspect]
     Indication: DYSPEPSIA
     Route: 048
     Dates: start: 20030826
  5. NEXIUM [Suspect]
     Indication: GASTROOESOPHAGEAL REFLUX DISEASE
     Route: 048
     Dates: start: 20030826
  6. NEXIUM [Suspect]
     Indication: ABDOMINAL DISCOMFORT
     Route: 048
     Dates: start: 20030826
  7. NEXIUM [Suspect]
     Indication: DYSPEPSIA
     Route: 048
     Dates: start: 20041108
  8. NEXIUM [Suspect]
     Indication: GASTROOESOPHAGEAL REFLUX DISEASE
     Route: 048
     Dates: start: 20041108
  9. NEXIUM [Suspect]
     Indication: ABDOMINAL DISCOMFORT
     Route: 048
     Dates: start: 20041108
  10. NEXIUM [Suspect]
     Indication: DYSPEPSIA
     Dosage: 2.5 MG , 5 MG,10 MG, 20 MG, 40 MG
     Route: 048
     Dates: start: 20131216
  11. NEXIUM [Suspect]
     Indication: GASTROOESOPHAGEAL REFLUX DISEASE
     Dosage: 2.5 MG , 5 MG,10 MG, 20 MG, 40 MG
     Route: 048
     Dates: start: 20131216
  12. NEXIUM [Suspect]
     Indication: ABDOMINAL DISCOMFORT
     Dosage: 2.5 MG , 5 MG,10 MG, 20 MG, 40 MG
     Route: 048
     Dates: start: 20131216
  13. PREVACID [Suspect]
     Indication: GASTROOESOPHAGEAL REFLUX DISEASE
     Route: 065
     Dates: start: 1997, end: 2006
  14. PREVACID [Suspect]
     Indication: ABDOMINAL DISCOMFORT
     Route: 065
     Dates: start: 1997, end: 2006
  15. PREVACID [Suspect]
     Indication: DYSPEPSIA
     Route: 065
     Dates: start: 1997, end: 2006
  16. ZANTAC [Concomitant]
     Indication: ABDOMINAL DISCOMFORT
  17. MYLANTA [Concomitant]
  18. PERCOCET [Concomitant]
     Dosage: 325/525
  19. LYRICA [Concomitant]
  20. CELEBREX [Concomitant]
  21. VITAMIN D [Concomitant]
  22. IODINE [Concomitant]
  23. NAPROXIN [Concomitant]
  24. OYSTER CALCIUM [Concomitant]
  25. LISINOPRIL [Concomitant]
  26. NORVASC [Concomitant]
  27. ARTHROTEC [Concomitant]
  28. FLEXERAL [Concomitant]
  29. WELLBUTRIN [Concomitant]
  30. ASPIRIN [Concomitant]
     Dates: start: 20030825
  31. BACTRIM [Concomitant]
     Dosage: 800/160 MG  TWO TIMES IN A DAY
     Dates: start: 20030825
  32. PREDNISONE [Concomitant]
     Dates: start: 20031021
  33. MOTRIN [Concomitant]
     Dates: start: 20031118
  34. SOMA [Concomitant]
  35. DIPHENHYDRAMINE [Concomitant]
  36. METOPROLOL SUCCINATE [Concomitant]
     Dosage: DAILY
  37. HYDROCHLOROTHIAZIDE [Concomitant]
     Dates: start: 2013

REACTIONS (24)
  - Cerebrovascular accident [Unknown]
  - Transient ischaemic attack [Unknown]
  - Osteoarthritis [Unknown]
  - Fibromyalgia [Unknown]
  - Hip deformity [Unknown]
  - Migraine [Unknown]
  - Cardiac disorder [Unknown]
  - Osteoporosis [Unknown]
  - Bone disorder [Unknown]
  - Multiple fractures [Unknown]
  - Vitamin D deficiency [Unknown]
  - Hand fracture [Unknown]
  - Back pain [Unknown]
  - Muscle spasms [Unknown]
  - Chest pain [Unknown]
  - Anxiety [Unknown]
  - Osteomalacia [Unknown]
  - Calcium deficiency [Unknown]
  - Depression [Unknown]
  - Impaired healing [Unknown]
  - Osteopenia [Unknown]
  - Fall [Unknown]
  - Spondylolisthesis [Unknown]
  - Rotator cuff syndrome [Unknown]
